FAERS Safety Report 9366209 (Version 1)
Quarter: 2013Q2

REPORT INFORMATION
  Report Type: Spontaneous
  Country: IT (occurrence: IT)
  Receive Date: 20130625
  Receipt Date: 20130625
  Transmission Date: 20140414
  Serious: Yes (Other)
  Sender: FDA-Public Use
  Company Number: IT-TEVA-414790ISR

PATIENT
  Age: 62 Year
  Sex: Female

DRUGS (1)
  1. CARBOPLATINO TEVA [Suspect]
     Indication: LUNG NEOPLASM
     Dosage: 500 MILLIGRAM DAILY;
     Route: 042
     Dates: start: 20130604, end: 20130604

REACTIONS (6)
  - Pemphigoid [Recovered/Resolved]
  - Pemphigoid [Recovered/Resolved]
  - Pruritus [Recovered/Resolved]
  - Palmar erythema [Recovered/Resolved]
  - Infusion site pruritus [Recovered/Resolved]
  - Infusion site erythema [Recovered/Resolved]
